FAERS Safety Report 4325209-7 (Version None)
Quarter: 2004Q1

REPORT INFORMATION
  Report Type: 
  Country: None (occurrence: None)
  Receive Date: 20040324
  Receipt Date: 20040310
  Transmission Date: 20041129
  Serious: Yes (Hospitalization, Other)
  Sender: FDA-Public Use
  Company Number: 2004016551

PATIENT
  Age: 11 Year
  Sex: Female

DRUGS (2)
  1. ATARAX [Suspect]
     Indication: URTICARIA
     Dosage: ORAL
     Route: 048
     Dates: start: 20010101, end: 20010101
  2. CORTICOSTEROIDS [Suspect]
     Indication: URTICARIA
     Dosage: ORAL
     Route: 048
     Dates: start: 20010101, end: 20010101

REACTIONS (11)
  - CONDITION AGGRAVATED [None]
  - DRUG INEFFECTIVE [None]
  - FALL [None]
  - FEELING ABNORMAL [None]
  - HYPERSENSITIVITY [None]
  - HYPOVOLAEMIA [None]
  - MYDRIASIS [None]
  - PALLOR [None]
  - TILT TABLE TEST [None]
  - URTICARIA [None]
  - VISION BLURRED [None]
